FAERS Safety Report 10464987 (Version 1)
Quarter: 2014Q3

REPORT INFORMATION
  Report Type: Report from Study
  Country: BR (occurrence: BR)
  Receive Date: 20140919
  Receipt Date: 20140919
  Transmission Date: 20150326
  Serious: Yes (Hospitalization)
  Sender: FDA-Public Use
  Company Number: BR-GLAXOSMITHKLINE-A1089777A

PATIENT
  Sex: Female
  Weight: 49 kg

DRUGS (9)
  1. THIAMINE HYDROCHLORIDE. [Concomitant]
     Active Substance: THIAMINE HYDROCHLORIDE
  2. AZITHROMYCIN [Concomitant]
     Active Substance: AZITHROMYCIN ANHYDROUS
  3. OMEPRAZOLE. [Concomitant]
     Active Substance: OMEPRAZOLE
  4. COUMARIN [Concomitant]
     Active Substance: COUMARIN
  5. SERETIDE [Suspect]
     Active Substance: FLUTICASONE FUROATE\SALMETEROL XINAFOATE
     Indication: ASTHMA
     Dosage: 1U TWICE PER DAY
     Route: 055
     Dates: start: 1994, end: 201407
  6. NAC [Concomitant]
  7. TROXERUTIN [Concomitant]
     Active Substance: TROXERUTIN
  8. PRELONE [Concomitant]
     Active Substance: PREDNISOLONE
  9. EQUITAM [Concomitant]

REACTIONS (5)
  - Fatigue [Unknown]
  - Asthma [Unknown]
  - Drug ineffective [Unknown]
  - Aphthous stomatitis [Not Recovered/Not Resolved]
  - Tuberculosis [Not Recovered/Not Resolved]

NARRATIVE: CASE EVENT DATE: 1994
